FAERS Safety Report 15534551 (Version 1)
Quarter: 2018Q4

REPORT INFORMATION
  Report Type: Spontaneous
  Country: FR (occurrence: FR)
  Receive Date: 20181022
  Receipt Date: 20181022
  Transmission Date: 20190205
  Serious: Yes (Hospitalization)
  Sender: FDA-Public Use
  Company Number: FR-SUN PHARMACEUTICAL INDUSTRIES LTD-2018RR-188154

PATIENT
  Age: 47 Year
  Sex: Male
  Weight: 75 kg

DRUGS (6)
  1. SOTALOL. [Suspect]
     Active Substance: SOTALOL
     Indication: PRODUCT USED FOR UNKNOWN INDICATION
     Dosage: ()
     Route: 048
  2. ATORVASTATINE [Suspect]
     Active Substance: ATORVASTATIN
     Indication: HYPERCHOLESTEROLAEMIA
     Dosage: ()
     Route: 048
  3. ASPIRINE [Suspect]
     Active Substance: ASPIRIN
     Indication: PRODUCT USED FOR UNKNOWN INDICATION
     Dosage: ()
     Route: 048
  4. CARBOPLATINE HOSPIRA [Suspect]
     Active Substance: CARBOPLATIN
     Indication: LUNG ADENOCARCINOMA
     Dosage: ()
     Route: 041
     Dates: start: 20180112, end: 20180604
  5. GEMCITABINE [Suspect]
     Active Substance: GEMCITABINE\GEMCITABINE HYDROCHLORIDE
     Indication: LUNG ADENOCARCINOMA
     Dosage: ()
     Route: 041
     Dates: start: 20180718, end: 20180814
  6. OXALIPLATINE ACCORD [Suspect]
     Active Substance: OXALIPLATIN
     Indication: LUNG ADENOCARCINOMA
     Dosage: ()
     Route: 041
     Dates: start: 20180718, end: 20180814

REACTIONS (2)
  - Haemoptysis [Recovering/Resolving]
  - Interstitial lung disease [Not Recovered/Not Resolved]

NARRATIVE: CASE EVENT DATE: 20180731
